FAERS Safety Report 4917257-0 (Version None)
Quarter: 2006Q1

REPORT INFORMATION
  Report Type: 
  Country: None (occurrence: None)
  Receive Date: 20060221
  Receipt Date: 20050505
  Transmission Date: 20060701
  Serious: Yes (Other)
  Sender: FDA-Public Use
  Company Number: US-MERCK-0505USA00938

PATIENT
  Age: 53 Year
  Sex: Female
  Weight: 77 kg

DRUGS (5)
  1. VIOXX [Suspect]
     Indication: ARTHRITIS
     Route: 048
     Dates: start: 19980101, end: 20040101
  2. ASPIRIN [Concomitant]
     Route: 065
  3. ADVIL [Concomitant]
     Route: 065
  4. ALEVE [Concomitant]
     Route: 065
  5. NITRO [Concomitant]
     Route: 065
     Dates: start: 20040101

REACTIONS (5)
  - ANXIETY DISORDER [None]
  - CARPAL TUNNEL DECOMPRESSION [None]
  - CEREBROVASCULAR ACCIDENT [None]
  - DEPRESSION [None]
  - KNEE OPERATION [None]
